FAERS Safety Report 19020687 (Version 1)
Quarter: 2021Q1

REPORT INFORMATION
  Report Type: Spontaneous
  Country: IT (occurrence: IT)
  Receive Date: 20210317
  Receipt Date: 20210317
  Transmission Date: 20210420
  Serious: Yes (Other)
  Sender: FDA-Public Use
  Company Number: IT-PFIZER INC-2021249572

PATIENT
  Age: 18 Year
  Sex: Female

DRUGS (1)
  1. TAVOR (LORAZEPAM) [Suspect]
     Active Substance: LORAZEPAM
     Indication: AGITATION
     Dosage: 4 MG, FREQ:{TOTAL}
     Route: 048
     Dates: start: 20210209, end: 20210209

REACTIONS (4)
  - Somnolence [Not Recovered/Not Resolved]
  - Off label use [Unknown]
  - Depressed level of consciousness [Not Recovered/Not Resolved]
  - Intentional overdose [Not Recovered/Not Resolved]

NARRATIVE: CASE EVENT DATE: 20210209
